FAERS Safety Report 5302064-X (Version None)
Quarter: 2007Q2

REPORT INFORMATION
  Report Type: 
  Country: None (occurrence: None)
  Receive Date: 20070416
  Receipt Date: 20070416
  Transmission Date: 20071010
  Serious: No
  Sender: FDA-Public Use
  Company Number: None

PATIENT
  Age: 43 Year
  Sex: Male
  Weight: 97.5234 kg

DRUGS (1)
  1. DOXYCYCLINE [Suspect]
     Indication: EPIDIDYMITIS
     Dosage: 100 MG  TWICE DAILY  PO
     Route: 048
     Dates: start: 20070413, end: 20070415

REACTIONS (1)
  - HEADACHE [None]
